FAERS Safety Report 23874998 (Version 2)
Quarter: 2024Q2

REPORT INFORMATION
  Report Type: Report from Study
  Country: PE (occurrence: PE)
  Receive Date: 20240520
  Receipt Date: 20240614
  Transmission Date: 20240716
  Serious: No
  Sender: FDA-Public Use
  Company Number: PE-JNJFOC-20240489474

PATIENT
  Age: 26 Year
  Sex: Female

DRUGS (1)
  1. SIMPONI [Suspect]
     Active Substance: GOLIMUMAB
     Indication: Rheumatoid arthritis
     Dosage: STRENGTH- 50.00 MG / 0.50 ML
     Route: 058
     Dates: start: 20210608

REACTIONS (3)
  - Product dose omission issue [Unknown]
  - Device deployment issue [Unknown]
  - Accidental exposure to product [Unknown]

NARRATIVE: CASE EVENT DATE: 20240424
